FAERS Safety Report 12519982 (Version 2)
Quarter: 2016Q3

REPORT INFORMATION
  Report Type: Spontaneous
  Country: US (occurrence: US)
  Receive Date: 20160701
  Receipt Date: 20160804
  Transmission Date: 20161109
  Serious: Yes (Life-Threatening, Hospitalization, Disabling, Other)
  Sender: FDA-Public Use
  Company Number: US-009507513-1606USA013674

PATIENT
  Age: 56 Year
  Sex: Female

DRUGS (1)
  1. KEYTRUDA [Suspect]
     Active Substance: PEMBROLIZUMAB
     Indication: MALIGNANT MELANOMA
     Dosage: UNK
     Route: 042
     Dates: start: 20160509, end: 20160529

REACTIONS (7)
  - Neuropathy peripheral [Unknown]
  - Diverticulitis [Unknown]
  - Mass [Unknown]
  - Facial paralysis [Unknown]
  - Haemorrhage [Unknown]
  - Breast enlargement [Unknown]
  - Pneumonitis [Unknown]

NARRATIVE: CASE EVENT DATE: 2016
